FAERS Safety Report 8490702-2 (Version None)
Quarter: 2012Q3

REPORT INFORMATION
  Report Type: 
  Country: None (occurrence: None)
  Receive Date: 20120706
  Receipt Date: 20120625
  Transmission Date: 20120928
  Serious: Yes (Death, Hospitalization)
  Sender: FDA-Public Use
  Company Number: BR-AMGEN-BRASP2012016142

PATIENT
  Age: 73 Year
  Sex: Male
  Weight: 55 kg

DRUGS (4)
  1. ENBREL [Suspect]
     Indication: RHEUMATOID ARTHRITIS
     Dosage: 25 MG, 2X/WEEK
     Route: 058
     Dates: start: 20090601, end: 20110501
  2. ENBREL [Suspect]
     Dosage: 50 MG, ONCE WEEKLY
     Route: 058
     Dates: start: 20110501
  3. ENBREL [Suspect]
     Dosage: 50 MG, QWK
     Route: 058
     Dates: start: 20120101
  4. TENADREN [Concomitant]
     Indication: BLOOD PRESSURE
     Dosage: [PROPRANOLOL HYDROCHLORIDE 40 MG]/[HYDROCHLOROTHIAZIDE 25 MG], 1X/DAY
     Dates: start: 20070101

REACTIONS (7)
  - PNEUMONIA [None]
  - DENGUE FEVER [None]
  - DEHYDRATION [None]
  - ORTHOSTATIC HYPOTENSION [None]
  - PRESYNCOPE [None]
  - WRONG TECHNIQUE IN DRUG USAGE PROCESS [None]
  - APPLICATION SITE PAIN [None]
